FAERS Safety Report 10417414 (Version 1)
Quarter: 2014Q3

REPORT INFORMATION
  Report Type: Spontaneous
  Country: US (occurrence: US)
  Receive Date: 20140829
  Receipt Date: 20140829
  Transmission Date: 20150326
  Serious: Yes (Other)
  Sender: FDA-Public Use
  Company Number: US-ROCHE-1454973

PATIENT
  Age: 37 Year
  Sex: Female

DRUGS (1)
  1. ACTIVASE [Suspect]
     Active Substance: ALTEPLASE
     Indication: HEMIPARESIS
     Route: 065

REACTIONS (3)
  - Cerebrovascular accident [Unknown]
  - Convulsion [Unknown]
  - Artery dissection [Unknown]
